FAERS Safety Report 7610415-6 (Version None)
Quarter: 2011Q3

REPORT INFORMATION
  Report Type: 
  Country: None (occurrence: None)
  Receive Date: 20110715
  Receipt Date: 20110712
  Transmission Date: 20111222
  Serious: No
  Sender: FDA-Public Use
  Company Number: US-PFIZER INC-2011157169

PATIENT
  Age: 45 Year
  Sex: Female

DRUGS (5)
  1. DEXAMETHASONE SODIUM PHOSPHATE [Suspect]
     Dosage: UNK, THREE TIMES
     Dates: start: 20110201, end: 20110401
  2. CLARITIN [Concomitant]
     Indication: SEASONAL ALLERGY
     Dosage: UNK
  3. MONTELUKAST SODIUM [Concomitant]
     Indication: SEASONAL ALLERGY
     Dosage: UNK
  4. LIDOCAINE HYDROCHLORIDE [Suspect]
     Dosage: UNK, THREE TIMES
     Dates: start: 20110201, end: 20110401
  5. DEPO-MEDROL [Suspect]
     Indication: PLANTAR FASCIITIS
     Dosage: UNK, TWO TIMES
     Dates: start: 20110201, end: 20110401

REACTIONS (4)
  - PARAESTHESIA [None]
  - INSOMNIA [None]
  - ALOPECIA [None]
  - ANXIETY [None]
